FAERS Safety Report 15135081 (Version 1)
Quarter: 2018Q3

REPORT INFORMATION
  Report Type: Report from Study
  Country: KR (occurrence: KR)
  Receive Date: 20180712
  Receipt Date: 20180712
  Transmission Date: 20181010
  Serious: Yes (Hospitalization)
  Sender: FDA-Public Use
  Company Number: KR-JNJFOC-20180705004

PATIENT
  Age: 64 Year
  Sex: Male
  Weight: 71 kg

DRUGS (25)
  1. SOLONDO [Concomitant]
     Active Substance: PREDNISOLONE
     Route: 065
     Dates: start: 20180423, end: 20180429
  2. FEROBA [Concomitant]
     Active Substance: FERROUS SULFATE\PROTEASE
     Indication: ANAEMIA
     Route: 065
     Dates: start: 20150601
  3. LOPMIN [Concomitant]
     Route: 065
     Dates: start: 20170206
  4. PYRIDOXINE [Concomitant]
     Active Substance: PYRIDOXINE
     Indication: LATENT TUBERCULOSIS
     Route: 065
     Dates: start: 20180305, end: 20180527
  5. SOLONDO [Concomitant]
     Active Substance: PREDNISOLONE
     Route: 065
     Dates: start: 20180702
  6. AMBRECT [Concomitant]
     Indication: UPPER RESPIRATORY TRACT INFECTION
     Route: 065
     Dates: start: 20180108, end: 20180114
  7. CODEINE [Concomitant]
     Active Substance: CODEINE
     Indication: ABDOMINAL PAIN
     Route: 065
     Dates: start: 20180108, end: 20180114
  8. YUHANZID [Concomitant]
     Active Substance: ISONIAZID
     Indication: LATENT TUBERCULOSIS
     Route: 065
     Dates: start: 20180305, end: 20180527
  9. AZATHIOPRINE. [Suspect]
     Active Substance: AZATHIOPRINE
     Indication: COLITIS ULCERATIVE
     Route: 048
     Dates: start: 20171113, end: 20180610
  10. SOLONDO [Concomitant]
     Active Substance: PREDNISOLONE
     Route: 065
     Dates: start: 20180326, end: 20180401
  11. GUGU [Concomitant]
     Indication: LOWER URINARY TRACT SYMPTOMS
     Route: 065
     Dates: start: 20171211, end: 20180204
  12. HARNAL [Concomitant]
     Active Substance: TAMSULOSIN HYDROCHLORIDE
     Indication: LOWER URINARY TRACT SYMPTOMS
     Route: 065
     Dates: start: 20180205, end: 20180429
  13. SOLONDO [Concomitant]
     Active Substance: PREDNISOLONE
     Route: 065
     Dates: start: 20180402, end: 20180408
  14. SOLONDO [Concomitant]
     Active Substance: PREDNISOLONE
     Route: 065
     Dates: start: 20180430, end: 20180527
  15. PANTOLINE [Concomitant]
     Active Substance: PANTOPRAZOLE SODIUM
     Indication: GASTROINTESTINAL DISORDER THERAPY
     Route: 065
     Dates: start: 20180614, end: 20180628
  16. SOLONDO [Concomitant]
     Active Substance: PREDNISOLONE
     Route: 065
     Dates: start: 20180305, end: 20180325
  17. GOLIMUMAB [Suspect]
     Active Substance: GOLIMUMAB
     Indication: COLITIS ULCERATIVE
     Route: 058
  18. SOLONDO [Concomitant]
     Active Substance: PREDNISOLONE
     Route: 065
     Dates: start: 20180409, end: 20180415
  19. SOLONDO [Concomitant]
     Active Substance: PREDNISOLONE
     Route: 065
     Dates: start: 20180614, end: 20180627
  20. RIFAMPIN. [Concomitant]
     Active Substance: RIFAMPIN
     Indication: LATENT TUBERCULOSIS
     Route: 065
     Dates: start: 20180305, end: 20180527
  21. ASACOL [Concomitant]
     Active Substance: MESALAMINE
     Route: 065
     Dates: start: 20140827
  22. SOLONDO [Concomitant]
     Active Substance: PREDNISOLONE
     Route: 065
     Dates: start: 20180625, end: 20180701
  23. WARFARIN [Concomitant]
     Active Substance: WARFARIN
     Indication: DEEP VEIN THROMBOSIS
     Route: 065
     Dates: start: 20171023, end: 20180609
  24. SOLONDO [Concomitant]
     Active Substance: PREDNISOLONE
     Route: 065
     Dates: start: 20140827, end: 20180304
  25. SOLONDO [Concomitant]
     Active Substance: PREDNISOLONE
     Route: 065
     Dates: start: 20180416, end: 20180422

REACTIONS (1)
  - Haemorrhagic anaemia [Recovered/Resolved]

NARRATIVE: CASE EVENT DATE: 20180610
